FAERS Safety Report 19036645 (Version 1)
Quarter: 2021Q1

REPORT INFORMATION
  Report Type: Spontaneous
  Country: IT (occurrence: IT)
  Receive Date: 20210322
  Receipt Date: 20210322
  Transmission Date: 20210420
  Serious: Yes (Death, Other)
  Sender: FDA-Public Use
  Company Number: IT-LUPIN PHARMACEUTICALS INC.-2021-03542

PATIENT
  Age: 60 Year
  Sex: Male

DRUGS (16)
  1. TICAGRELOR. [Concomitant]
     Active Substance: TICAGRELOR
     Indication: ACUTE MYOCARDIAL INFARCTION
     Dosage: 180 MILLIGRAM (LOADING DOSE)
     Route: 048
     Dates: start: 202003
  2. EPTIFIBATIDE. [Concomitant]
     Active Substance: EPTIFIBATIDE
     Indication: CORONARY ARTERY THROMBOSIS
     Dosage: 180 MICROGRAM/KILOGRAM (BOLUS)
     Route: 042
     Dates: start: 202003
  3. EPTIFIBATIDE. [Concomitant]
     Active Substance: EPTIFIBATIDE
     Dosage: 180 MICROGRAM/KILOGRAM (BOLUS )
     Route: 022
     Dates: start: 202003
  4. HEPARIN [Concomitant]
     Active Substance: HEPARIN SODIUM
     Indication: ACUTE MYOCARDIAL INFARCTION
     Dosage: 4000 INTERNATIONAL UNIT
     Route: 065
     Dates: start: 202003
  5. N?ACETYLCYSTEINE [Concomitant]
     Active Substance: ACETYLCYSTEINE
     Indication: PRODUCT USED FOR UNKNOWN INDICATION
     Dosage: 600 MILLIGRAM, BID
     Route: 065
     Dates: start: 202003
  6. EPTIFIBATIDE. [Concomitant]
     Active Substance: EPTIFIBATIDE
     Dosage: 2 MICROGRAM/KILOGRAM PER MIN
     Route: 042
     Dates: start: 202003
  7. ASPIRINA [Concomitant]
     Active Substance: ASPIRIN
     Indication: ACUTE MYOCARDIAL INFARCTION
     Dosage: 150 MILLIGRAM
     Route: 065
     Dates: start: 202003
  8. ADENOSINE. [Concomitant]
     Active Substance: ADENOSINE
     Indication: CORONARY ARTERY THROMBOSIS
     Dosage: UNK
     Route: 022
     Dates: start: 202003
  9. ENOXAPARIN [Concomitant]
     Active Substance: ENOXAPARIN
     Indication: THROMBOSIS PROPHYLAXIS
     Dosage: 4000 INTERNATIONAL UNIT
     Route: 058
     Dates: start: 202003
  10. HYDROXYCHLOROQUINE [Suspect]
     Active Substance: HYDROXYCHLOROQUINE
     Indication: COVID-19 PNEUMONIA
     Dosage: 200 MILLIGRAM, BID
     Route: 065
     Dates: start: 202003
  11. DEXAMETHASONE. [Suspect]
     Active Substance: DEXAMETHASONE
     Indication: COVID-19 PNEUMONIA
     Dosage: 12 MILLIGRAM
     Route: 042
     Dates: start: 202003
  12. CEFTRIAXONE. [Concomitant]
     Active Substance: CEFTRIAXONE
     Indication: ANTIBIOTIC PROPHYLAXIS
     Dosage: 2 GRAM
     Route: 042
     Dates: start: 202003
  13. FUROSEMIDE. [Concomitant]
     Active Substance: FUROSEMIDE
     Indication: PRODUCT USED FOR UNKNOWN INDICATION
     Dosage: 20 MILLIGRAM, BID
     Route: 042
     Dates: start: 202003
  14. LOPINAVIR/RITONAVIR [Suspect]
     Active Substance: LOPINAVIR\RITONAVIR
     Indication: COVID-19 PNEUMONIA
     Dosage: 2 DOSAGE FORM, QD (TWO TABLETS TWICE DAILY)
     Route: 065
     Dates: start: 202003
  15. EPTIFIBATIDE. [Concomitant]
     Active Substance: EPTIFIBATIDE
     Dosage: 2 MICROGRAM/KILOGRAM (INFUSION)
     Route: 042
     Dates: start: 202003
  16. NITROPRUSSIDE [Concomitant]
     Active Substance: NITROPRUSSIDE
     Indication: CORONARY ARTERY THROMBOSIS
     Dosage: UNK
     Route: 022
     Dates: start: 202003

REACTIONS (1)
  - Off label use [Unknown]

NARRATIVE: CASE EVENT DATE: 202003
